FAERS Safety Report 11651918 (Version 1)
Quarter: 2015Q4

REPORT INFORMATION
  Report Type: Spontaneous
  Country: ES (occurrence: ES)
  Receive Date: 20151022
  Receipt Date: 20151022
  Transmission Date: 20160304
  Serious: Yes (Hospitalization)
  Sender: FDA-Public Use
  Company Number: ES-WATSON-2015-22290

PATIENT
  Age: 81 Year
  Sex: Female

DRUGS (3)
  1. FENTANILO ACTAVIS [Suspect]
     Active Substance: FENTANYL
     Indication: PAIN
     Dosage: 50 ?G,1/THREE DAYS. PATIENT TREATED WITH 25 MCG FENTANYL PATCHES FROM 2013 UP IN APRIL
     Route: 003
     Dates: start: 20150416, end: 20150726
  2. SEROQUEL [Suspect]
     Active Substance: QUETIAPINE FUMARATE
     Indication: PRODUCT USED FOR UNKNOWN INDICATION
     Dosage: 300 MG, DAILY. (0-0-1). ASTRAZENECA FARMACEUTICA
     Route: 048
     Dates: start: 20150713
  3. AMOXICILLIN CLAVULANIC ACID [Concomitant]
     Active Substance: AMOXICILLIN\CLAVULANIC ACID
     Indication: PRODUCT USED FOR UNKNOWN INDICATION
     Dosage: UNK
     Route: 048
     Dates: start: 20150715

REACTIONS (1)
  - Gait disturbance [Recovered/Resolved]

NARRATIVE: CASE EVENT DATE: 20150726
